FAERS Safety Report 8901996 (Version 1)
Quarter: 2012Q4

REPORT INFORMATION
  Report Type: 
  Country: US (occurrence: US)
  Receive Date: 20121112
  Receipt Date: 20121112
  Transmission Date: 20130627
  Serious: Yes (Hospitalization)
  Sender: FDA-Public Use
  Company Number: US-BAYER-2012-116609

PATIENT
  Age: 28 Year
  Sex: Female
  Weight: 73.92 kg

DRUGS (5)
  1. YAZ [Suspect]
     Indication: MENORRHAGIA
  2. PRILOSEC [Concomitant]
     Dosage: 20 mg, UNK
  3. PROZAC [Concomitant]
     Dosage: 40 mg, UNK
  4. CLARITIN [Concomitant]
     Dosage: 10 mg, UNK
  5. OXYCODONE [Concomitant]

REACTIONS (2)
  - Pulmonary embolism [None]
  - Menorrhagia [None]
